FAERS Safety Report 4764840-1 (Version None)
Quarter: 2005Q3

REPORT INFORMATION
  Report Type: 
  Country: None (occurrence: None)
  Receive Date: 20050909
  Receipt Date: 20050401
  Transmission Date: 20060218
  Serious: Yes (Other)
  Sender: FDA-Public Use
  Company Number: GB-BRISTOL-MYERS SQUIBB COMPANY-13102983

PATIENT
  Sex: Male

DRUGS (8)
  1. ZERIT [Suspect]
     Indication: HIV INFECTION
     Route: 048
     Dates: start: 19980101, end: 20030201
  2. VIDEX [Suspect]
     Indication: HIV INFECTION
     Route: 048
     Dates: start: 19980101, end: 20040501
  3. SUSTIVA [Suspect]
     Indication: HIV INFECTION
     Route: 048
     Dates: start: 19990701, end: 20040501
  4. INDINAVIR [Suspect]
     Indication: HIV INFECTION
     Dates: start: 19980101, end: 19990701
  5. TENOFOVIR [Suspect]
     Indication: HIV INFECTION
     Dates: start: 20030201
  6. ATAZANAVIR [Concomitant]
     Indication: HIV INFECTION
     Dates: start: 20040501
  7. RITONAVIR [Concomitant]
     Indication: HIV INFECTION
     Dates: start: 20040501
  8. EMTRICITABINE [Concomitant]
     Indication: HIV INFECTION
     Dates: start: 20040501

REACTIONS (4)
  - ABNORMAL DREAMS [None]
  - HYPERLIPIDAEMIA [None]
  - LIPOATROPHY [None]
  - LIPODYSTROPHY ACQUIRED [None]
